FAERS Safety Report 6286606-6 (Version None)
Quarter: 2009Q3

REPORT INFORMATION
  Report Type: 
  Country: None (occurrence: None)
  Receive Date: 20090728
  Receipt Date: 20090716
  Transmission Date: 20100115
  Serious: Yes (Other)
  Sender: FDA-Public Use
  Company Number: PHEH2009US08049

PATIENT
  Sex: Female

DRUGS (20)
  1. RECLAST [Suspect]
     Indication: OSTEOPOROSIS
     Dosage: 5 MG, UNK
     Dates: start: 20090709, end: 20090709
  2. TRIMETHOPRIM [Concomitant]
  3. ALDACTONE [Concomitant]
  4. ULTRAM [Concomitant]
  5. PERIDIN C [Concomitant]
  6. TYLENOL [Concomitant]
  7. ALPRAZOLAM [Concomitant]
  8. ASPIRIN [Concomitant]
  9. CALCIUM W/VITAMIN D NOS [Concomitant]
  10. COREG [Concomitant]
  11. DIGOXIN [Concomitant]
  12. VICODIN [Concomitant]
  13. ANTIVERT ^PFIZER^ [Concomitant]
  14. ZAROXOLYN [Concomitant]
  15. MULTI-VITAMINS [Concomitant]
  16. OMEPRAZOLE [Concomitant]
     Dosage: UNK MG, BID
  17. MIRALAX [Concomitant]
  18. ALTACE [Concomitant]
  19. ZOCOR [Concomitant]
  20. VESICARE [Concomitant]

REACTIONS (7)
  - ARTHRALGIA [None]
  - ERYTHEMA [None]
  - JOINT SWELLING [None]
  - LOCAL SWELLING [None]
  - NECK PAIN [None]
  - OEDEMA PERIPHERAL [None]
  - PAIN IN EXTREMITY [None]
